FAERS Safety Report 24081565 (Version 2)
Quarter: 2024Q3

REPORT INFORMATION
  Report Type: Spontaneous
  Country: US (occurrence: US)
  Receive Date: 20240712
  Receipt Date: 20240924
  Transmission Date: 20241016
  Serious: No
  Sender: JOHNSON AND JOHNSON
  Company Number: US-JNJFOC-20240727346

PATIENT
  Age: 49 Year
  Sex: Female
  Weight: 127 kg

DRUGS (14)
  1. MACITENTAN\TADALAFIL [Suspect]
     Active Substance: MACITENTAN\TADALAFIL
     Indication: Product used for unknown indication
     Route: 048
     Dates: start: 202406
  2. TYVASO [Suspect]
     Active Substance: TREPROSTINIL
     Indication: Pulmonary arterial hypertension
     Dosage: TREPROSTINIL SODIUM, CONCENTRATION OF 0.6 MG/ML) DELIVERED BY TYVASO INHALATION DEVICE (TD-300/A)
     Route: 055
     Dates: start: 20190117
  3. MAGNESIUM GLUCONATE [Concomitant]
     Active Substance: MAGNESIUM GLUCONATE
  4. TADALAFIL [Concomitant]
     Active Substance: TADALAFIL
  5. TYLENOL [Concomitant]
     Active Substance: ACETAMINOPHEN
  6. GINGER [Concomitant]
     Active Substance: GINGER
  7. LEVOTHYROXINE SODIUM [Concomitant]
     Active Substance: LEVOTHYROXINE SODIUM
  8. VITAMIN D3 [Concomitant]
     Active Substance: CHOLECALCIFEROL
  9. HERBALS\TURMERIC [Concomitant]
     Active Substance: HERBALS\TURMERIC
  10. FLUTICASONE PROPIONATE [Concomitant]
     Active Substance: FLUTICASONE PROPIONATE
  11. EPIPEN [Concomitant]
     Active Substance: EPINEPHRINE
  12. OPSUMIT [Concomitant]
     Active Substance: MACITENTAN
  13. VITAMIN B2 [Concomitant]
     Active Substance: RIBOFLAVIN
  14. TORSEMIDE [Concomitant]
     Active Substance: TORSEMIDE

REACTIONS (1)
  - Headache [Unknown]

NARRATIVE: CASE EVENT DATE: 20240601
